FAERS Safety Report 6425479-5 (Version None)
Quarter: 2009Q4

REPORT INFORMATION
  Report Type: 
  Country: None (occurrence: None)
  Receive Date: 20091103
  Receipt Date: 20091026
  Transmission Date: 20100525
  Serious: Yes (Other)
  Sender: FDA-Public Use
  Company Number: GB-PFIZER INC-2009288230

PATIENT
  Age: 58 Year
  Sex: Male
  Weight: 119 kg

DRUGS (4)
  1. IRINOTECAN HCL [Suspect]
     Indication: COLORECTAL CANCER
     Dosage: 360 MG, UNK
     Route: 042
     Dates: start: 20080819
  2. FLUOROURACIL [Concomitant]
     Dosage: UNK
     Route: 042
     Dates: start: 20090701
  3. CALCIUM FOLINATE [Concomitant]
     Dosage: 350 MG, UNK
     Route: 042
     Dates: start: 20090701
  4. OXALIPLATIN [Concomitant]
     Dosage: UNK
     Route: 042
     Dates: start: 20090701

REACTIONS (2)
  - CYANOSIS [None]
  - DYSPNOEA [None]
